FAERS Safety Report 9377060 (Version 2)
Quarter: 2013Q3

REPORT INFORMATION
  Report Type: Spontaneous
  Country: US (occurrence: US)
  Receive Date: 20130701
  Receipt Date: 20130924
  Transmission Date: 20140515
  Serious: Yes (Hospitalization, Other)
  Sender: FDA-Public Use
  Company Number: US-LUNDBECK-DKLU1090690

PATIENT
  Age: 30 Year
  Sex: Male

DRUGS (5)
  1. ONFI [Suspect]
     Indication: HEADACHE
     Route: 048
     Dates: start: 20130124
  2. ONFI [Suspect]
     Dates: start: 201302
  3. VIMPAT [Suspect]
     Indication: PRODUCT USED FOR UNKNOWN INDICATION
  4. FELBATOL [Concomitant]
     Indication: PRODUCT USED FOR UNKNOWN INDICATION
  5. FIORICET [Concomitant]
     Indication: PRODUCT USED FOR UNKNOWN INDICATION

REACTIONS (11)
  - Mania [Recovered/Resolved]
  - Abnormal behaviour [Recovered/Resolved]
  - Grand mal convulsion [Recovered/Resolved]
  - Self-injurious ideation [Recovered/Resolved]
  - Decreased appetite [Recovered/Resolved]
  - Insomnia [Recovered/Resolved]
  - Screaming [Recovered/Resolved]
  - Energy increased [Recovered/Resolved]
  - Personality change [Recovered/Resolved]
  - Dysarthria [Recovered/Resolved]
  - Dysphagia [Recovered/Resolved]
